FAERS Safety Report 13205264 (Version 2)
Quarter: 2017Q1

REPORT INFORMATION
  Report Type: Spontaneous
  Country: US (occurrence: US)
  Receive Date: 20170209
  Receipt Date: 20170328
  Transmission Date: 20170428
  Serious: Yes (Hospitalization, Other)
  Sender: FDA-Public Use
  Company Number: US-PFIZER INC-2017055912

PATIENT
  Age: 63 Year
  Sex: Female
  Weight: 78 kg

DRUGS (7)
  1. LOSARTAN. [Concomitant]
     Active Substance: LOSARTAN
     Dosage: UNK (FOR ABOUT 5 YEARS)
  2. ADVIL PM [Suspect]
     Active Substance: DIPHENHYDRAMINE CITRATE\IBUPROFEN
     Indication: ARTHRITIS
     Dosage: 2 DF, UNK
     Route: 048
     Dates: start: 201612, end: 201612
  3. LOSARTAN. [Concomitant]
     Active Substance: LOSARTAN
     Indication: HYPERTENSION
     Dosage: 12.5 MG, UNK
     Dates: start: 2012
  4. ADVIL PM [Suspect]
     Active Substance: DIPHENHYDRAMINE CITRATE\IBUPROFEN
     Indication: ARTHRITIS
     Dosage: 2 DF, 1X/DAY AT BEDTIME (200 MG IBUPROFEN, 38 MG DIPHENHYDRAMINE)
     Route: 048
     Dates: start: 20170124, end: 201701
  5. ADVIL PM [Suspect]
     Active Substance: DIPHENHYDRAMINE CITRATE\IBUPROFEN
     Indication: PAIN
  6. ADVIL PM [Suspect]
     Active Substance: DIPHENHYDRAMINE CITRATE\IBUPROFEN
     Indication: SLEEP DISORDER
  7. ADVIL PM [Suspect]
     Active Substance: DIPHENHYDRAMINE CITRATE\IBUPROFEN
     Indication: SLEEP DISORDER

REACTIONS (5)
  - Dysphagia [Recovered/Resolved]
  - Choking sensation [Recovered/Resolved]
  - Product difficult to swallow [Recovered/Resolved]
  - Choking [Recovered/Resolved]
  - Foreign body [Recovered/Resolved]

NARRATIVE: CASE EVENT DATE: 201612
